FAERS Safety Report 16968806 (Version 3)
Quarter: 2020Q2

REPORT INFORMATION
  Report Type: Spontaneous
  Country: US (occurrence: US)
  Receive Date: 20191029
  Receipt Date: 20200407
  Transmission Date: 20200713
  Serious: No
  Sender: FDA-Public Use
  Company Number: US-AMGEN-USASP2019177822

PATIENT
  Age: 63 Year
  Sex: Female

DRUGS (1)
  1. ENBREL [Suspect]
     Active Substance: ETANERCEPT
     Indication: PRODUCT USED FOR UNKNOWN INDICATION
     Dosage: UNK
     Route: 065

REACTIONS (6)
  - Therapeutic product effect decreased [Unknown]
  - Arthralgia [Unknown]
  - Pain [Unknown]
  - Back pain [Unknown]
  - Musculoskeletal stiffness [Unknown]
  - Pain in extremity [Unknown]
